FAERS Safety Report 8821768 (Version 1)
Quarter: 2012Q4

REPORT INFORMATION
  Report Type: 
  Country: US (occurrence: US)
  Receive Date: 20121002
  Receipt Date: 20121002
  Transmission Date: 20130627
  Serious: Yes (Other)
  Sender: FDA-Public Use
  Company Number: US-WATSON-2012-16616

PATIENT
  Sex: Male
  Weight: 86.17 kg

DRUGS (6)
  1. TRELSTAR (WATSON LABORATORIES) [Suspect]
     Indication: PROSTATE CANCER
     Dosage: one injection given in buttocks
     Route: 030
     Dates: start: 20100808
  2. ELIGARD [Suspect]
     Indication: PROSTATE CANCER
     Dosage: one injection given upper abdomen
     Route: 030
     Dates: start: 20110202
  3. LEUPROLIDE [Suspect]
     Indication: PROSTATE CANCER
     Dosage: injection given in right hip
     Route: 030
     Dates: start: 20120527
  4. WARFARIN [Concomitant]
     Indication: CORONARY ARTERY DISEASE
     Dosage: 2 mg daily
     Route: 048
     Dates: start: 2007
  5. MOBIC [Concomitant]
     Indication: ANALGESIC THERAPY
     Dosage: 7.5 mg daily
     Route: 048
     Dates: start: 2000
  6. VITAMINS [Concomitant]
     Indication: SUPPLEMENTATION THERAPY
     Dosage: daily
     Route: 048

REACTIONS (1)
  - Soft tissue mass [Recovering/Resolving]
